FAERS Safety Report 12631223 (Version 2)
Quarter: 2016Q3

REPORT INFORMATION
  Report Type: Spontaneous
  Country: US (occurrence: US)
  Receive Date: 20160808
  Receipt Date: 20160808
  Transmission Date: 20161109
  Serious: No
  Sender: FDA-Public Use
  Company Number: US-BEH-2015052892

PATIENT
  Sex: Female

DRUGS (1)
  1. HIZENTRA [Suspect]
     Active Substance: HUMAN IMMUNOGLOBULIN G
     Indication: PRODUCT USED FOR UNKNOWN INDICATION

REACTIONS (7)
  - Toothache [Unknown]
  - Headache [Unknown]
  - Nausea [Unknown]
  - Fatigue [Unknown]
  - Blood immunoglobulin G decreased [Unknown]
  - Hyperhidrosis [Unknown]
  - Gastrointestinal disorder [Unknown]
